FAERS Safety Report 10648171 (Version 1)
Quarter: 2014Q4

REPORT INFORMATION
  Report Type: Spontaneous
  Country: US (occurrence: None)
  Receive Date: 20141210
  Receipt Date: 20141210
  Transmission Date: 20150529
  Serious: Yes (Hospitalization)
  Sender: FDA-Public Use
  Company Number: FDB-2014-043

PATIENT
  Age: 48 Year
  Sex: Male

DRUGS (1)
  1. KIT FOR THE PREPARATION OF TECHNETIUM TC 99M MEBROFENIN [Suspect]
     Active Substance: TECHNETIUM TC-99M MEBROFENIN
     Indication: HEPATOBILIARY SCAN
     Dosage: 5MCI, IV
     Route: 042
     Dates: start: 20141124

REACTIONS (6)
  - Dyspnoea [None]
  - Seizure [None]
  - Muscle rigidity [None]
  - Bruxism [None]
  - Hyperhidrosis [None]
  - Eye movement disorder [None]

NARRATIVE: CASE EVENT DATE: 20141124
